FAERS Safety Report 6040577-6 (Version None)
Quarter: 2009Q1

REPORT INFORMATION
  Report Type: 
  Country: None (occurrence: None)
  Receive Date: 20090116
  Receipt Date: 20080408
  Transmission Date: 20090719
  Serious: No
  Sender: FDA-Public Use
  Company Number: US-BRISTOL-MYERS SQUIBB COMPANY-14144273

PATIENT
  Sex: Male

DRUGS (2)
  1. ABILIFY [Suspect]
     Route: 048
  2. VYVANSE [Suspect]
     Dosage: CAPS
     Route: 048

REACTIONS (1)
  - MANIA [None]
